FAERS Safety Report 18686418 (Version 3)
Quarter: 2021Q1

REPORT INFORMATION
  Report Type: Spontaneous
  Country: DE (occurrence: DE)
  Receive Date: 20201230
  Receipt Date: 20210209
  Transmission Date: 20210419
  Serious: Yes (Other)
  Sender: FDA-Public Use
  Company Number: DE-JNJFOC-20201242725

PATIENT
  Age: 18 Year
  Sex: Female

DRUGS (1)
  1. TREMFYA [Suspect]
     Active Substance: GUSELKUMAB
     Indication: PRODUCT USED FOR UNKNOWN INDICATION
     Route: 058
     Dates: start: 2018

REACTIONS (4)
  - Device malfunction [Unknown]
  - Product dose omission issue [Not Recovered/Not Resolved]
  - Injection site pain [Recovered/Resolved]
  - Therapeutic procedure [Unknown]

NARRATIVE: CASE EVENT DATE: 202012
